FAERS Safety Report 5312280-9 (Version None)
Quarter: 2007Q2

REPORT INFORMATION
  Report Type: 
  Country: None (occurrence: None)
  Receive Date: 20070430
  Receipt Date: 20060914
  Transmission Date: 20071010
  Serious: No
  Sender: FDA-Public Use
  Company Number: 2006UW17987

PATIENT
  Age: 35 Year
  Sex: Female
  Weight: 43.1 kg

DRUGS (4)
  1. NEXIUM [Suspect]
     Indication: GASTROOESOPHAGEAL REFLUX DISEASE
     Route: 048
     Dates: start: 20060801
  2. FLOVENT [Concomitant]
  3. SINGULAIR [Concomitant]
  4. INDERAL [Concomitant]

REACTIONS (3)
  - APHONIA [None]
  - COUGH [None]
  - WHEEZING [None]
